FAERS Safety Report 13352600 (Version 1)
Quarter: 2017Q1

REPORT INFORMATION
  Report Type: Spontaneous
  Country: RU (occurrence: RU)
  Receive Date: 20170320
  Receipt Date: 20170320
  Transmission Date: 20170429
  Serious: Yes (Other)
  Sender: FDA-Public Use
  Company Number: RU-BAYER-2017-050113

PATIENT
  Age: 77 Year
  Sex: Female

DRUGS (1)
  1. STIVARGA [Suspect]
     Active Substance: REGORAFENIB
     Indication: COLON CANCER STAGE IV
     Dosage: 3 DF, QD
     Dates: start: 2016

REACTIONS (9)
  - Tachycardia [Recovered/Resolved]
  - Blood bilirubin increased [None]
  - Colon cancer stage IV [None]
  - Red blood cell count decreased [None]
  - Haemolytic anaemia [None]
  - Haemoglobin decreased [None]
  - Coombs test positive [None]
  - Palmar-plantar erythrodysaesthesia syndrome [Recovered/Resolved]
  - Pleurisy [None]

NARRATIVE: CASE EVENT DATE: 201602
